FAERS Safety Report 6288094-2 (Version None)
Quarter: 2009Q3

REPORT INFORMATION
  Report Type: 
  Country: None (occurrence: None)
  Receive Date: 20090729
  Receipt Date: 20080623
  Transmission Date: 20100115
  Serious: No
  Sender: FDA-Public Use
  Company Number: A0734568A

PATIENT
  Age: 58 Year
  Sex: Male

DRUGS (3)
  1. ZANTAC [Suspect]
     Dosage: 150MG TWICE PER DAY
     Route: 048
     Dates: start: 20070601
  2. LISINOPRIL [Concomitant]
  3. STOOL SOFTENER [Concomitant]

REACTIONS (11)
  - ABDOMINAL PAIN [None]
  - ERYTHEMA [None]
  - FEAR [None]
  - FEELING HOT [None]
  - GASTROOESOPHAGEAL REFLUX DISEASE [None]
  - HAEMOPTYSIS [None]
  - HEART RATE IRREGULAR [None]
  - LABYRINTHITIS [None]
  - NAUSEA [None]
  - RASH [None]
  - VERTIGO [None]
